FAERS Safety Report 5320109-8 (Version None)
Quarter: 2007Q2

REPORT INFORMATION
  Report Type: 
  Country: None (occurrence: None)
  Receive Date: 20070503
  Receipt Date: 20070427
  Transmission Date: 20071010
  Serious: Yes (Death)
  Sender: FDA-Public Use
  Company Number: 163-20785-07041470

PATIENT
  Age: 71 Year
  Sex: Female

DRUGS (7)
  1. REVLIMID [Suspect]
     Indication: MULTIPLE MYELOMA
     Dosage: 15 MG, 1 IN 1 D, ORAL
     Route: 048
     Dates: start: 20031123, end: 20070418
  2. THALOMID [Suspect]
     Indication: MULTIPLE MYELOMA
     Dosage: 400-50MG, DAILY, ORAL
     Route: 048
     Dates: start: 20031124, end: 20060101
  3. THALOMID [Suspect]
  4. THALOMID [Suspect]
  5. THALOMID [Suspect]
  6. THALOMID [Suspect]
  7. THALOMID [Suspect]

REACTIONS (2)
  - DISEASE PROGRESSION [None]
  - MULTIPLE MYELOMA [None]
